FAERS Safety Report 10052598 (Version 1)
Quarter: 2014Q2

REPORT INFORMATION
  Report Type: Spontaneous
  Country: PT (occurrence: PT)
  Receive Date: 20140402
  Receipt Date: 20140402
  Transmission Date: 20141212
  Serious: Yes (Life-Threatening)
  Sender: FDA-Public Use
  Company Number: PT-ASTRAZENECA-2014SE22612

PATIENT
  Age: 31 Year
  Sex: Female

DRUGS (2)
  1. PROPOFOL [Suspect]
     Indication: ENDOTRACHEAL INTUBATION
     Route: 042
  2. SUCCINYLCHOLINE [Concomitant]
     Indication: ENDOTRACHEAL INTUBATION

REACTIONS (1)
  - Drug hypersensitivity [Unknown]
